FAERS Safety Report 4409911-4 (Version None)
Quarter: 2004Q3

REPORT INFORMATION
  Report Type: 
  Country: None (occurrence: None)
  Receive Date: 20040728
  Receipt Date: 20040726
  Transmission Date: 20050211
  Serious: Yes (Hospitalization)
  Sender: FDA-Public Use
  Company Number: US-GLAXOSMITHKLINE-A0519705A

PATIENT
  Age: 2 Month
  Sex: Female

DRUGS (2)
  1. DYAZIDE [Suspect]
     Indication: HYPERTENSION
     Dosage: 1TAB PER DAY
  2. NO CONCURRENT MEDICATION [Concomitant]

REACTIONS (4)
  - DRUG EXPOSURE VIA BREAST MILK [None]
  - NEONATAL DISORDER [None]
  - PYREXIA [None]
  - URINARY TRACT INFECTION [None]
